FAERS Safety Report 7403813-7 (Version None)
Quarter: 2011Q2

REPORT INFORMATION
  Report Type: 
  Country: None (occurrence: None)
  Receive Date: 20110401
  Receipt Date: 20110321
  Transmission Date: 20111010
  Serious: Yes (Hospitalization)
  Sender: FDA-Public Use
  Company Number: 029633

PATIENT
  Sex: Male

DRUGS (4)
  1. LACOSAMIDE [Suspect]
     Indication: EPILEPSY
     Dosage: (350 MG ORAL), (400 MG ORAL)
     Route: 048
     Dates: start: 20090921
  2. LACOSAMIDE [Suspect]
     Indication: EPILEPSY
     Dosage: (350 MG ORAL), (400 MG ORAL)
     Route: 048
     Dates: start: 20090717, end: 20090920
  3. PHENYTOIN [Concomitant]
  4. LEVETIRACETAM [Concomitant]

REACTIONS (2)
  - CONDITION AGGRAVATED [None]
  - CONVULSION [None]
